FAERS Safety Report 16580068 (Version 5)
Quarter: 2020Q1

REPORT INFORMATION
  Report Type: Spontaneous
  Country: DE (occurrence: DE)
  Receive Date: 20190716
  Receipt Date: 20200205
  Transmission Date: 20200409
  Serious: Yes (Disabling, Other)
  Sender: FDA-Public Use
  Company Number: DE-AMGEN-DEUSP2019110280

PATIENT
  Age: 56 Year
  Sex: Female
  Weight: 60 kg

DRUGS (2)
  1. PROLIA [Suspect]
     Active Substance: DENOSUMAB
     Indication: BONE DENSITY DECREASED
     Dosage: 60 MILLIGRAM, Q6MO
     Route: 058
     Dates: start: 20100730, end: 20120731
  2. DEKRISTOLVIT D3 [Concomitant]
     Dosage: 20 UNK, QWK

REACTIONS (10)
  - Renal failure [Recovered/Resolved]
  - Arthralgia [Unknown]
  - Spinal compression fracture [Not Recovered/Not Resolved]
  - Bone pain [Unknown]
  - Dyspnoea [Unknown]
  - Myalgia [Unknown]
  - Sleep disorder due to a general medical condition [Unknown]
  - Oral infection [Unknown]
  - Alopecia [Unknown]
  - Gastric disorder [Unknown]

NARRATIVE: CASE EVENT DATE: 20131017
